FAERS Safety Report 4918375-3 (Version None)
Quarter: 2006Q1

REPORT INFORMATION
  Report Type: 
  Country: None (occurrence: None)
  Receive Date: 20060214
  Receipt Date: 20060203
  Transmission Date: 20060701
  Serious: Yes (Other)
  Sender: FDA-Public Use
  Company Number: 200610476GDS

PATIENT
  Age: 42 Year
  Sex: Female

DRUGS (1)
  1. CIPROFLOXACIN [Suspect]
     Dosage: 500 MG, BID, ORAL
     Route: 048

REACTIONS (9)
  - ALANINE AMINOTRANSFERASE INCREASED [None]
  - ASPARTATE AMINOTRANSFERASE INCREASED [None]
  - BLOOD ALKALINE PHOSPHATASE INCREASED [None]
  - HEPATIC ENZYME INCREASED [None]
  - IMMUNOGLOBULINS INCREASED [None]
  - JAUNDICE [None]
  - LEUKOCYTOSIS [None]
  - LYMPHADENOPATHY [None]
  - PRURITUS [None]
